FAERS Safety Report 4562646-X (Version None)
Quarter: 2005Q1

REPORT INFORMATION
  Report Type: 
  Country: None (occurrence: None)
  Receive Date: 20050124
  Receipt Date: 20050111
  Transmission Date: 20050727
  Serious: Yes (Other)
  Sender: FDA-Public Use
  Company Number: 2005010660

PATIENT
  Sex: Male

DRUGS (1)
  1. CELEBREX [Suspect]
     Indication: INFLAMMATION
     Dosage: 200 MG
     Dates: end: 20050111

REACTIONS (5)
  - BLOOD PRESSURE DECREASED [None]
  - BRONCHOSPASM [None]
  - HYPERSENSITIVITY [None]
  - RASH [None]
  - URTICARIA [None]
